FAERS Safety Report 4872680-8 (Version None)
Quarter: 2006Q1

REPORT INFORMATION
  Report Type: 
  Country: None (occurrence: None)
  Receive Date: 20060103
  Receipt Date: 20051216
  Transmission Date: 20060701
  Serious: Yes (Other)
  Sender: FDA-Public Use
  Company Number: NO200512003741

PATIENT
  Age: 40 Year
  Sex: Male

DRUGS (4)
  1. STRATTERA [Suspect]
     Indication: ATTENTION DEFICIT/HYPERACTIVITY DISORDER
     Dosage: 150 MG, DAILY, (1/D), ORAL
     Route: 048
     Dates: start: 20051101
  2. AMPHETAMINE SULFATE [Concomitant]
  3. DIAZEPAM [Concomitant]
  4. ZOPICLONE (ZOPICLONE) [Concomitant]

REACTIONS (6)
  - AGGRESSION [None]
  - ANXIETY [None]
  - DRUG INEFFECTIVE [None]
  - HOMICIDE [None]
  - RESTLESSNESS [None]
  - SELF-MEDICATION [None]
